FAERS Safety Report 19928377 (Version 1)
Quarter: 2021Q4

REPORT INFORMATION
  Report Type: Other
  Country: JP (occurrence: JP)
  Receive Date: 20211007
  Receipt Date: 20211007
  Transmission Date: 20220303
  Serious: Yes (Other)
  Sender: FDA-Public Use
  Company Number: JP-ROCHE-2924994

PATIENT

DRUGS (11)
  1. MYCOPHENOLATE MOFETIL [Suspect]
     Active Substance: MYCOPHENOLATE MOFETIL
     Indication: Prophylaxis against graft versus host disease
     Dosage: WAS GIVEN ORALLY INSTEAD OF?MTX FROM DAY 0 TO DAY 30 AT A DOSE OF 30 MG/KG/DAY
     Route: 048
  2. CYCLOSPORINE [Suspect]
     Active Substance: CYCLOSPORINE
     Indication: Prophylaxis against graft versus host disease
     Dosage: DAY STARTING ON DAY - 1 AT A DOSE OF 3 MG/KG/ DAY.
     Route: 042
  3. METHOTREXATE [Suspect]
     Active Substance: METHOTREXATE
     Indication: Prophylaxis against graft versus host disease
     Dosage: (15 MG/M2 INTRAVENOUSLY) WAS GIVEN ON DAY 1,?AND 10 MG/M2 ON DAYS 3 AND 6.
     Route: 042
  4. BUSULFAN [Suspect]
     Active Substance: BUSULFAN
     Indication: Prophylaxis against graft versus host disease
     Dosage: 3.2 MG/KG/DAY OF BU ON DAY TOTAL AMOUNT IS TOTAL 12.8 MG/KG
     Route: 065
  5. FLUDARABINE [Suspect]
     Active Substance: FLUDARABINE PHOSPHATE
     Indication: Prophylaxis against graft versus host disease
     Dosage: DAY -7 TO -2 AND TOTAL IS 180 MG/M2
     Route: 065
  6. CYTARABINE [Suspect]
     Active Substance: CYTARABINE
     Indication: Prophylaxis against graft versus host disease
     Dosage: 4 G/M2/DAY OF CA ON DAYS 3 TO 2 (TOTAL 8 G/M2)
     Route: 065
  7. FILGRASTIM [Concomitant]
     Active Substance: FILGRASTIM
  8. VALPROATE SODIUM [Concomitant]
     Active Substance: VALPROATE SODIUM
  9. URSODIOL [Concomitant]
     Active Substance: URSODIOL
  10. ACYCLOVIR [Concomitant]
     Active Substance: ACYCLOVIR
  11. LETERMOVIR [Concomitant]
     Active Substance: LETERMOVIR

REACTIONS (16)
  - Pneumonia [Unknown]
  - Sepsis [Unknown]
  - Fungal infection [Unknown]
  - Nausea [Unknown]
  - Vomiting [Unknown]
  - Diarrhoea [Unknown]
  - Haemorrhage [Unknown]
  - Mucosal inflammation [Unknown]
  - Febrile neutropenia [Unknown]
  - Hyperbilirubinaemia [Unknown]
  - Weight increased [Unknown]
  - Venoocclusive liver disease [Unknown]
  - Palmar-plantar erythrodysaesthesia syndrome [Unknown]
  - Hallucination [Unknown]
  - Blood creatinine increased [Unknown]
  - Transaminases increased [Unknown]
